FAERS Safety Report 19572556 (Version 3)
Quarter: 2021Q3

REPORT INFORMATION
  Report Type: Spontaneous
  Country: CA (occurrence: CA)
  Receive Date: 20210716
  Receipt Date: 20210906
  Transmission Date: 20211014
  Serious: Yes (Other)
  Sender: FDA-Public Use
  Company Number: CA-PFIZER INC-2021702368

PATIENT
  Age: 65 Year
  Sex: Female

DRUGS (3)
  1. PREDNISON [Concomitant]
     Active Substance: PREDNISONE
     Dosage: UNK
  2. RUXIENCE [Suspect]
     Active Substance: RITUXIMAB-PVVR
     Indication: GRANULOMATOSIS WITH POLYANGIITIS
     Dosage: 500 MG (DAY 1 AND DAY 15 EVERY 6 MONTHS)
     Route: 042
  3. METHOTREXATE. [Concomitant]
     Active Substance: METHOTREXATE
     Dosage: UNK (INCREASING DOSE TO 20MG SUBCUTANEOUS WEEKLY)
     Route: 058

REACTIONS (3)
  - Blindness [Unknown]
  - Nervous system disorder [Unknown]
  - Off label use [Unknown]
